FAERS Safety Report 7179528-X (Version None)
Quarter: 2010Q4

REPORT INFORMATION
  Report Type: 
  Country: None (occurrence: None)
  Receive Date: 20101209
  Receipt Date: 20101129
  Transmission Date: 20110411
  Serious: Yes (Other)
  Sender: FDA-Public Use
  Company Number: 022949

PATIENT
  Sex: Female

DRUGS (8)
  1. CIMZIA [Suspect]
     Indication: RHEUMATOID ARTHRITIS
     Dosage: (400 MG 1X/2 WEEKS SUBCUTANEOUS), (200 MG 1X/2 WEEKS SUBCUTANEOUS)
     Route: 058
     Dates: start: 20100520, end: 20100613
  2. CIMZIA [Suspect]
     Indication: RHEUMATOID ARTHRITIS
     Dosage: (400 MG 1X/2 WEEKS SUBCUTANEOUS), (200 MG 1X/2 WEEKS SUBCUTANEOUS)
     Route: 058
     Dates: start: 20100628
  3. CIMZIA [Suspect]
  4. METHOTREXATE [Concomitant]
  5. ARTHROTEC [Concomitant]
  6. ACTONEL [Concomitant]
  7. GALENIC /CALCIUM/VITAMIN D/ [Concomitant]
  8. TYLENOL (CAPLET) [Concomitant]

REACTIONS (2)
  - PAIN [None]
  - THYROID NEOPLASM [None]
